FAERS Safety Report 14948985 (Version 2)
Quarter: 2018Q2

REPORT INFORMATION
  Report Type: Spontaneous
  Country: DE (occurrence: DE)
  Receive Date: 20180529
  Receipt Date: 20180619
  Transmission Date: 20180711
  Serious: Yes (Death)
  Sender: FDA-Public Use
  Company Number: DE-PFIZER INC-2018216634

PATIENT
  Age: 6 Decade
  Sex: Male

DRUGS (1)
  1. TAVOR (LORAZEPAM) [Suspect]
     Active Substance: LORAZEPAM
     Indication: RESTLESSNESS
     Dosage: UNK

REACTIONS (3)
  - Medication error [Fatal]
  - Ammonia increased [Fatal]
  - Poisoning [Fatal]

NARRATIVE: CASE EVENT DATE: 201506
